FAERS Safety Report 9643768 (Version 1)
Quarter: 2013Q4

REPORT INFORMATION
  Report Type: Spontaneous
  Country: US (occurrence: US)
  Receive Date: 20131024
  Receipt Date: 20131024
  Transmission Date: 20140711
  Serious: No
  Sender: FDA-Public Use
  Company Number: US-TEVA-440035USA

PATIENT
  Age: 75 Year
  Sex: Female
  Weight: 78.09 kg

DRUGS (2)
  1. NUVIGIL [Suspect]
     Indication: DEPRESSION
     Dates: end: 20131013
  2. NUVIGIL [Suspect]
     Indication: FATIGUE

REACTIONS (5)
  - Dizziness [Not Recovered/Not Resolved]
  - Headache [Not Recovered/Not Resolved]
  - Ear pain [Not Recovered/Not Resolved]
  - Feeling abnormal [Not Recovered/Not Resolved]
  - Off label use [Unknown]
